FAERS Safety Report 8597444-3 (Version None)
Quarter: 2012Q3

REPORT INFORMATION
  Report Type: 
  Country: None (occurrence: None)
  Receive Date: 20120816
  Receipt Date: 20120807
  Transmission Date: 20120928
  Serious: Yes (Other)
  Sender: FDA-Public Use
  Company Number: US-JNJFOC-20120805169

PATIENT

DRUGS (7)
  1. CYTARABINE [Suspect]
     Indication: ACUTE LYMPHOCYTIC LEUKAEMIA
     Dosage: ON DAY 1 AND ON DAYS 8, 15 AND 22 (TRIPLE THERAPY)
     Route: 037
  2. BORTEZOMIB [Suspect]
     Indication: ACUTE LYMPHOCYTIC LEUKAEMIA
     Dosage: ON DAY 1, 4, 8 AND 11
     Route: 042
  3. DOXORUBICIN HYDROCHLORIDE [Suspect]
     Indication: ACUTE LYMPHOCYTIC LEUKAEMIA
     Dosage: OVER 15-30 MINUTES ON DAY 1
     Route: 042
  4. DEXAMETHASONE [Suspect]
     Indication: ACUTE LYMPHOCYTIC LEUKAEMIA
     Dosage: DIVIDED INTO 2 DOSES FOR 14 CONSECUTOVE DAYS
     Route: 048
  5. VINCRISTINE [Suspect]
     Indication: ACUTE LYMPHOCYTIC LEUKAEMIA
     Dosage: 2MG MAXIMUM DOSE ON DAY1, 8, 15 AND 22
     Route: 042
  6. PEG-ASPARAGINASE [Suspect]
     Indication: ACUTE LYMPHOCYTIC LEUKAEMIA
     Dosage: 2500 UNITS/M2/DOSE AS WEEKLY 4 DOSES
     Route: 030
  7. METHOTREXATE [Suspect]
     Indication: ACUTE LYMPHOCYTIC LEUKAEMIA
     Dosage: ON DAY 15 AND ON DAYS 8, 15 AND 22 FOR TRIPLE THERAPY)
     Route: 037

REACTIONS (3)
  - ENCEPHALOPATHY [None]
  - OFF LABEL USE [None]
  - CEREBRAL ISCHAEMIA [None]
